FAERS Safety Report 10214233 (Version 2)
Quarter: 2014Q3

REPORT INFORMATION
  Report Type: Spontaneous
  Country: IT (occurrence: None)
  Receive Date: 20140530
  Receipt Date: 20140807
  Transmission Date: 20150326
  Serious: Yes (Other)
  Sender: FDA-Public Use
  Company Number: 2014AP003095

PATIENT
  Age: 47 Year
  Sex: Female

DRUGS (3)
  1. TACLOFEN (PROMAZINE HYDROCHLORIDE) [Concomitant]
     Active Substance: PROMAZINE HYDROCHLORIDE
  2. ZOLPIDEM [Suspect]
     Active Substance: ZOLPIDEM\ZOLPIDEM TARTRATE
     Indication: INTENTIONAL OVERDOSE
     Dosage: SINGLE
     Route: 048
     Dates: start: 20140324, end: 20140324
  3. ZOLOFT [Suspect]
     Active Substance: SERTRALINE HYDROCHLORIDE
     Indication: DRUG ABUSE
     Dosage: SINGLE
     Route: 048
     Dates: start: 20140324, end: 20140324

REACTIONS (4)
  - Loss of consciousness [None]
  - Intentional overdose [None]
  - Drug abuse [None]
  - Confusional state [None]

NARRATIVE: CASE EVENT DATE: 20140324
